FAERS Safety Report 9301531 (Version 1)
Quarter: 2013Q2

REPORT INFORMATION
  Report Type: Spontaneous
  Country: US (occurrence: None)
  Receive Date: 20130520
  Receipt Date: 20130520
  Transmission Date: 20140414
  Serious: Yes (Hospitalization)
  Sender: FDA-Public Use
  Company Number: None

PATIENT
  Sex: Male

DRUGS (2)
  1. INCIVEK 375MG VERTEX [Suspect]
     Indication: HEPATITIS C
     Route: 048
     Dates: start: 20130311
  2. PEGASYS 180MCG GENENTECH [Suspect]
     Indication: HEPATITIS C
     Dosage: PEGASYS 180 MCG ONCE PER WEEK SC
     Route: 058
     Dates: start: 20130311

REACTIONS (2)
  - Blood count abnormal [None]
  - Dehydration [None]
